FAERS Safety Report 23558220 (Version 1)
Quarter: 2024Q1

REPORT INFORMATION
  Report Type: Spontaneous
  Country: US (occurrence: US)
  Receive Date: 20240223
  Receipt Date: 20240223
  Transmission Date: 20240410
  Serious: No
  Sender: FDA-Public Use
  Company Number: US-GLAXOSMITHKLINE-US2024020416

PATIENT
  Age: 80 Year
  Sex: Female

DRUGS (1)
  1. ZEJULA [Suspect]
     Active Substance: NIRAPARIB
     Indication: Ovarian cancer
     Dosage: 200 MG, QD
     Dates: start: 20240114

REACTIONS (6)
  - Weight decreased [Unknown]
  - Abdominal pain upper [Unknown]
  - Dizziness [Unknown]
  - Chest pain [Unknown]
  - Umbilical hernia [Unknown]
  - Vision blurred [Unknown]

NARRATIVE: CASE EVENT DATE: 20240214
